FAERS Safety Report 8170009-3 (Version None)
Quarter: 2012Q1

REPORT INFORMATION
  Report Type: 
  Country: None (occurrence: None)
  Receive Date: 20120228
  Receipt Date: 20120215
  Transmission Date: 20120608
  Serious: Yes (Hospitalization, Other)
  Sender: FDA-Public Use
  Company Number: US-ELI_LILLY_AND_COMPANY-US201112003319

PATIENT
  Sex: Male
  Weight: 65 kg

DRUGS (8)
  1. HUMALOG MIX 75/25 [Suspect]
     Dosage: 25 U, BID
  2. ANTIHYPERTENSIVES [Concomitant]
     Indication: HYPERTENSION
     Dosage: UNK
  3. HUMALOG MIX 75/25 [Suspect]
     Dosage: 15 U, EACH EVENING
  4. HUMALOG MIX 75/25 [Suspect]
     Dosage: 20 U, BID
  5. HUMALOG MIX 75/25 [Suspect]
     Dosage: 25 U, BID
  6. INSULIN [Concomitant]
     Dosage: UNK
  7. HUMALOG MIX 75/25 [Suspect]
     Indication: TYPE 2 DIABETES MELLITUS
     Dosage: 20 U, BID
  8. HUMALOG MIX 75/25 [Suspect]
     Dosage: 15 U, EACH EVENING

REACTIONS (5)
  - RENAL FAILURE CHRONIC [None]
  - DIABETIC NEPHROPATHY [None]
  - VISUAL ACUITY REDUCED [None]
  - CATARACT [None]
  - DIABETIC RETINOPATHY [None]
